FAERS Safety Report 6019811-4 (Version None)
Quarter: 2008Q4

REPORT INFORMATION
  Report Type: 
  Country: None (occurrence: None)
  Receive Date: 20081224
  Receipt Date: 20081217
  Transmission Date: 20090506
  Serious: Yes (Other)
  Sender: FDA-Public Use
  Company Number: GB-ROXANE LABORATORIES, INC.-2008-RO-00447RO

PATIENT
  Age: 35 Year
  Sex: Female

DRUGS (7)
  1. FLUCONAZOLE [Suspect]
     Indication: VULVOVAGINAL PRURITUS
     Route: 048
  2. ACYCLOVIR [Concomitant]
     Indication: VULVOVAGINAL DISCOMFORT
  3. ACYCLOVIR [Concomitant]
     Indication: VULVAL DISORDER
  4. ACYCLOVIR [Concomitant]
     Indication: VULVOVAGINAL PRURITUS
  5. VALCICLOVIR [Concomitant]
     Indication: VULVOVAGINAL DISCOMFORT
  6. VALCICLOVIR [Concomitant]
     Indication: VULVAL DISORDER
  7. VALCICLOVIR [Concomitant]
     Indication: VULVOVAGINAL PRURITUS

REACTIONS (1)
  - DRUG ERUPTION [None]
